FAERS Safety Report 4659245-8 (Version None)
Quarter: 2005Q2

REPORT INFORMATION
  Report Type: 
  Country: None (occurrence: None)
  Receive Date: 20050502
  Receipt Date: 20050302
  Transmission Date: 20051028
  Serious: No
  Sender: FDA-Public Use
  Company Number: 200511672US

PATIENT
  Age: 49 Year
  Sex: Female

DRUGS (6)
  1. KETEK [Suspect]
     Indication: EAR INFECTION
     Dosage: 800 MG ONCE ; PO
     Route: 048
     Dates: start: 20050301, end: 20050301
  2. KETEK [Suspect]
     Indication: SINUSITIS
     Dosage: 800 MG ONCE ; PO
     Route: 048
     Dates: start: 20050301, end: 20050301
  3. GUAIFENESIN [Concomitant]
  4. HC TUSSIN (NOS) [Concomitant]
  5. MOMETASONE FUROATE (NASONEX) [Concomitant]
  6. ZYRTEC [Concomitant]

REACTIONS (8)
  - DIPLOPIA [None]
  - HEADACHE [None]
  - NAUSEA [None]
  - PHOTOPSIA [None]
  - PRURITUS GENERALISED [None]
  - VISION BLURRED [None]
  - VISUAL ACUITY REDUCED [None]
  - VISUAL DISTURBANCE [None]
